FAERS Safety Report 5226858-4 (Version None)
Quarter: 2007Q1

REPORT INFORMATION
  Report Type: 
  Country: None (occurrence: None)
  Receive Date: 20070202
  Receipt Date: 20070123
  Transmission Date: 20070707
  Serious: Yes (Hospitalization)
  Sender: FDA-Public Use
  Company Number: US-JNJFOC-20070100906

PATIENT
  Sex: Male

DRUGS (21)
  1. PREZISTA [Suspect]
     Indication: HIV INFECTION
     Route: 048
  2. GS 9137 [Suspect]
     Route: 048
  3. GS 9137 [Suspect]
     Indication: HIV INFECTION
     Route: 048
  4. RITONAVIR [Suspect]
     Indication: HIV INFECTION
     Route: 048
  5. TRIZIVIR [Concomitant]
     Indication: HIV INFECTION
     Route: 065
  6. TESTOSTERONE [Concomitant]
     Indication: HYPOGONADISM
     Route: 062
  7. TIPRANAVIR [Concomitant]
     Indication: HIV INFECTION
     Route: 065
  8. FLUCONAZOLE [Concomitant]
     Indication: INFECTION
     Route: 065
  9. VIREAD [Concomitant]
     Indication: HIV INFECTION
     Route: 065
  10. T-20 [Concomitant]
     Indication: HIV INFECTION
     Route: 065
  11. PAROXETINE HCL [Concomitant]
     Indication: DEPRESSION
     Route: 065
  12. DURAGESIC-100 [Concomitant]
     Indication: PAIN
     Route: 065
  13. RANITIDINE [Concomitant]
     Indication: GASTROOESOPHAGEAL REFLUX DISEASE
     Route: 065
  14. ACYCLOVIR [Concomitant]
     Indication: HERPES VIRUS INFECTION
     Route: 065
  15. SEROQUEL [Concomitant]
     Indication: INSOMNIA
     Route: 065
  16. AZITHROMYCIN [Concomitant]
     Indication: INFECTION
     Route: 065
  17. SEPTRA [Concomitant]
     Indication: ANTIFUNGAL PROPHYLAXIS
     Route: 065
  18. ASPIRIN [Concomitant]
     Route: 065
  19. LEVOTHYROXINE SODIUM [Concomitant]
     Route: 065
  20. COLACE [Concomitant]
     Route: 065
  21. OXYCODONE HCL [Concomitant]
     Route: 065

REACTIONS (1)
  - OSTEOMYELITIS BACTERIAL [None]
